FAERS Safety Report 20354318 (Version 1)
Quarter: 2022Q1

REPORT INFORMATION
  Report Type: Spontaneous
  Country: VN (occurrence: VN)
  Receive Date: 20220120
  Receipt Date: 20220120
  Transmission Date: 20220423
  Serious: Yes (Life-Threatening, Other)
  Sender: FDA-Public Use
  Company Number: VN-LEADINGPHARMA-VN-2022LEALIT00005

PATIENT
  Age: 48 Year
  Sex: Female
  Weight: 66.7 kg

DRUGS (2)
  1. LIDOCAINE [Suspect]
     Active Substance: LIDOCAINE
     Indication: Local anaesthesia
     Dosage: 10 ML 2% LIDOCAINE (200 MG)
     Route: 065
  2. LIDOCAINE [Suspect]
     Active Substance: LIDOCAINE
     Indication: Analgesic therapy

REACTIONS (1)
  - Local anaesthetic systemic toxicity [Recovered/Resolved]
